FAERS Safety Report 24260936 (Version 1)
Quarter: 2024Q3

REPORT INFORMATION
  Report Type: Spontaneous
  Country: AU (occurrence: AU)
  Receive Date: 20240829
  Receipt Date: 20240829
  Transmission Date: 20241017
  Serious: Yes (Other)
  Sender: SANDOZ
  Company Number: AU-002147023-NVSC2024AU169578

PATIENT
  Sex: Female

DRUGS (2)
  1. COSENTYX [Suspect]
     Active Substance: SECUKINUMAB
     Indication: Psoriatic arthropathy
     Dosage: UNK
     Route: 058
     Dates: start: 20230908
  2. METHOTREXATE [Suspect]
     Active Substance: METHOTREXATE
     Indication: Product used for unknown indication
     Dosage: UNK
     Route: 065

REACTIONS (8)
  - Pneumonia [Unknown]
  - Psoriatic arthropathy [Unknown]
  - Infection [Unknown]
  - Skin candida [Unknown]
  - Vulvovaginal candidiasis [Unknown]
  - Staphylococcal skin infection [Unknown]
  - COVID-19 [Unknown]
  - Prescription drug used without a prescription [Unknown]
